FAERS Safety Report 7744351-1 (Version None)
Quarter: 2011Q3

REPORT INFORMATION
  Report Type: 
  Country: None (occurrence: None)
  Receive Date: 20110912
  Receipt Date: 20110906
  Transmission Date: 20111222
  Serious: Yes (Other)
  Sender: FDA-Public Use
  Company Number: DK-SANOFI-AVENTIS-2011SA057534

PATIENT
  Age: 54 Year
  Sex: Female

DRUGS (6)
  1. CENTYL MED KALIUMKLORID [Concomitant]
  2. PLAVIX [Suspect]
     Dosage: STYRKE: 75 MG
     Route: 048
     Dates: start: 20100501, end: 20110401
  3. TODOLAC [Concomitant]
  4. ACETAMINOPHEN [Concomitant]
  5. CODEINE SULFATE [Concomitant]
  6. SIMVASTATIN [Concomitant]

REACTIONS (3)
  - ANTINUCLEAR ANTIBODY INCREASED [None]
  - PORPHYRIA NON-ACUTE [None]
  - LIVER DISORDER [None]
